FAERS Safety Report 8189656-8 (Version None)
Quarter: 2012Q1

REPORT INFORMATION
  Report Type: 
  Country: None (occurrence: None)
  Receive Date: 20120221
  Receipt Date: 20120110
  Transmission Date: 20120608
  Serious: No
  Sender: FDA-Public Use
  Company Number: 049478

PATIENT
  Sex: Female
  Weight: 81.2 kg

DRUGS (3)
  1. LACOSAMIDE [Suspect]
     Indication: CONVULSION
     Dosage: (350 MG, DOSE: 150MG AM AND 200 MG PM ORAL), (50 MG BID ORAL)
     Route: 048
     Dates: start: 20110101
  2. LACOSAMIDE [Suspect]
     Indication: CONVULSION
     Dosage: (350 MG, DOSE: 150MG AM AND 200 MG PM ORAL), (50 MG BID ORAL)
     Route: 048
     Dates: start: 20110301, end: 20110101
  3. ZONEGRAN [Concomitant]

REACTIONS (3)
  - AGGRESSION [None]
  - IRRITABILITY [None]
  - ANGER [None]
